FAERS Safety Report 23871176 (Version 1)
Quarter: 2024Q2

REPORT INFORMATION
  Report Type: Spontaneous
  Country: US (occurrence: US)
  Receive Date: 20240518
  Receipt Date: 20240518
  Transmission Date: 20240716
  Serious: No
  Sender: FDA-Public Use
  Company Number: US-SA-SAC20240513000093

PATIENT
  Sex: Female
  Weight: 81.19 kg

DRUGS (17)
  1. DUPIXENT [Suspect]
     Active Substance: DUPILUMAB
     Indication: Chronic rhinosinusitis with nasal polyps
     Dosage: 300 MG, QOW (START DATE: 2021/2022)
     Route: 058
  2. GLASSIA [Concomitant]
     Active Substance: .ALPHA.1-PROTEINASE INHIBITOR HUMAN
  3. TRAZODONE HYDROCHLORIDE [Concomitant]
     Active Substance: TRAZODONE HYDROCHLORIDE
  4. ALBUTEROL SULFATE [Concomitant]
     Active Substance: ALBUTEROL SULFATE
  5. CETIRIZINE HCL [Concomitant]
     Active Substance: CETIRIZINE HYDROCHLORIDE
  6. AMLODIPINE BESYLATE [Concomitant]
     Active Substance: AMLODIPINE BESYLATE
  7. DOXEPIN HCL [Concomitant]
     Active Substance: DOXEPIN HYDROCHLORIDE
  8. PAROXETINE HYDROCHLORIDE [Concomitant]
     Active Substance: PAROXETINE HYDROCHLORIDE\PAROXETINE HYDROCHLORIDE ANHYDROUS
  9. RAMIPRIL [Concomitant]
     Active Substance: RAMIPRIL
  10. OXYGEN [Concomitant]
     Active Substance: OXYGEN
  11. SINGULAIR [Concomitant]
     Active Substance: MONTELUKAST SODIUM
  12. VITAMIN D3 [Concomitant]
     Active Substance: CHOLECALCIFEROL
  13. PROLIA [Concomitant]
     Active Substance: DENOSUMAB
  14. TRELEGY ELLIPTA [Concomitant]
     Active Substance: FLUTICASONE FUROATE\UMECLIDINIUM BROMIDE\VILANTEROL TRIFENATATE
  15. PROAIR HFA [Concomitant]
     Active Substance: ALBUTEROL SULFATE
  16. DALIRESP [Concomitant]
     Active Substance: ROFLUMILAST
  17. MUCINEX DM MAXIMUM STRENGTH [Concomitant]
     Active Substance: DEXTROMETHORPHAN HYDROBROMIDE\GUAIFENESIN

REACTIONS (1)
  - Sinus disorder [Unknown]
